FAERS Safety Report 7629092 (Version 3)
Quarter: 2012Q4

REPORT INFORMATION
  Report Type: Report from Study
  Country: FR (occurrence: FR)
  Receive Date: 20101014
  Receipt Date: 20120921
  Transmission Date: 20130627
  Serious: Yes (Hospitalization)
  Sender: FDA-Public Use
  Company Number: PHHO2010FR14882

PATIENT
  Age: 30 Year
  Sex: Male

DRUGS (3)
  1. NEORAL [Suspect]
     Indication: RENAL TRANSPLANT
     Dosage: 425 mg, / day (200 +225)
     Route: 048
     Dates: start: 20100701, end: 20100725
  2. MYCOPHENOLIC ACID [Suspect]
     Indication: RENAL TRANSPLANT
     Dosage: 720 mg, BID
     Route: 048
     Dates: start: 20100701, end: 20100725
  3. UNSPECIFIED INGREDIENT [Suspect]

REACTIONS (8)
  - Suture rupture [Recovered/Resolved with Sequelae]
  - Intra-abdominal haematoma [Recovered/Resolved with Sequelae]
  - Renal necrosis [Recovered/Resolved with Sequelae]
  - Toxic skin eruption [Recovered/Resolved with Sequelae]
  - Enterococcal infection [Recovered/Resolved with Sequelae]
  - Proteus infection [Recovered/Resolved with Sequelae]
  - Pyrexia [Recovered/Resolved with Sequelae]
  - Proteus test positive [Recovered/Resolved with Sequelae]
